FAERS Safety Report 7007441-7 (Version None)
Quarter: 2010Q3

REPORT INFORMATION
  Report Type: 
  Country: None (occurrence: None)
  Receive Date: 20100922
  Receipt Date: 20100913
  Transmission Date: 20110219
  Serious: Yes (Hospitalization)
  Sender: FDA-Public Use
  Company Number: US-ASTRAZENECA-2010SE17978

PATIENT
  Age: 51 Year
  Sex: Male
  Weight: 86.6 kg

DRUGS (16)
  1. CRESTOR [Suspect]
     Indication: BLOOD CHOLESTEROL ABNORMAL
     Route: 048
     Dates: start: 20040101
  2. CRESTOR [Suspect]
     Indication: BLOOD CHOLESTEROL INCREASED
     Route: 048
     Dates: start: 20040101
  3. CRESTOR [Suspect]
     Route: 048
     Dates: start: 20080101
  4. CRESTOR [Suspect]
     Route: 048
     Dates: start: 20080101
  5. PLAVIX [Concomitant]
     Indication: BLOOD CHOLESTEROL
     Dates: start: 19980101
  6. LISINOPRIL [Concomitant]
     Indication: BLOOD PRESSURE
  7. ALPRAZOLAM [Concomitant]
  8. TRAZODONE HCL [Concomitant]
  9. IMDUR [Concomitant]
     Indication: CHEST PAIN
     Dosage: 30-60 MG DAILY
  10. METFORMIN [Concomitant]
  11. NORCO [Concomitant]
     Indication: BACK PAIN
     Dosage: 10/325  PRN
  12. SOMA [Concomitant]
  13. ASPIRIN [Concomitant]
  14. MULTI-VITAMIN [Concomitant]
     Dosage: DAILY
  15. NITROGLYCERIN [Concomitant]
  16. XANAX [Concomitant]
     Indication: ANXIETY

REACTIONS (14)
  - ANAEMIA [None]
  - ANGIOPLASTY [None]
  - ANXIETY [None]
  - BLOOD CHOLESTEROL ABNORMAL [None]
  - CARDIAC FAILURE CONGESTIVE [None]
  - CHEST PAIN [None]
  - HYPERTENSION [None]
  - INTRA-AORTIC BALLOON PLACEMENT [None]
  - LOW DENSITY LIPOPROTEIN INCREASED [None]
  - PNEUMONIA [None]
  - SPINAL NERVE STIMULATOR IMPLANTATION [None]
  - STENT PLACEMENT [None]
  - SURGERY [None]
  - SYNCOPE [None]
